FAERS Safety Report 8926267 (Version 1)
Quarter: 2012Q4

REPORT INFORMATION
  Report Type: 
  Country: TR (occurrence: TR)
  Receive Date: 20121126
  Receipt Date: 20121126
  Transmission Date: 20130627
  Serious: Yes (Death, Other)
  Sender: FDA-Public Use
  Company Number: TR-CELGENEUS-161-21880-11070686

PATIENT
  Age: 77 Year
  Sex: Male
  Weight: 71 kg

DRUGS (11)
  1. REVLIMID [Suspect]
     Indication: MULTIPLE MYELOMA
     Dosage: 25 Milligram
     Route: 048
     Dates: start: 20110701
  2. DEKORT [Suspect]
     Indication: MULTIPLE MYELOMA
     Dosage: 40 Milligram
     Route: 048
     Dates: start: 20110701
  3. DEKORT [Suspect]
     Dosage: 24 Milligram
     Route: 048
     Dates: start: 20110708
  4. VALTREX [Concomitant]
     Indication: ZONA
     Route: 065
     Dates: start: 20110701
  5. CLEXAN [Concomitant]
     Indication: DVT PROPHYLAXIS
     Route: 065
     Dates: start: 20110701
  6. BACTRIM [Concomitant]
     Indication: INFECTION PROPHYLAXIS
     Route: 065
     Dates: start: 20110701
  7. URIKOLIZ [Concomitant]
     Indication: PROPHYLAXIS
     Route: 065
     Dates: start: 20110701
  8. LYRICA [Concomitant]
     Indication: PARKINSON^S DISEASE
     Route: 065
     Dates: start: 201010
  9. LANSOR [Concomitant]
     Indication: PROPHYLAXIS
     Route: 065
     Dates: start: 20110701
  10. AZILECT [Concomitant]
     Indication: PARKINSON^S DISEASE
     Route: 065
     Dates: start: 20100323
  11. NOZINAN [Concomitant]
     Indication: DRUG USE FOR UNKNOWN INDICATION
     Route: 065

REACTIONS (8)
  - Dementia Alzheimer^s type [Fatal]
  - Hallucination [Recovered/Resolved]
  - Insomnia [Recovered/Resolved]
  - Red blood cell count decreased [None]
  - Platelet count decreased [None]
  - Haemoglobin decreased [None]
  - Fibrin D dimer increased [None]
  - C-reactive protein increased [None]
